FAERS Safety Report 4426322-6 (Version None)
Quarter: 2004Q3

REPORT INFORMATION
  Report Type: 
  Country: None (occurrence: None)
  Receive Date: 20040810
  Receipt Date: 20040726
  Transmission Date: 20050211
  Serious: No
  Sender: FDA-Public Use
  Company Number: A01200402701

PATIENT
  Age: 73 Year
  Sex: Male

DRUGS (10)
  1. XATRAL - (ALFUZOSIN) - TABLET PR  -  10 MG [Suspect]
     Indication: BENIGN PROSTATIC HYPERPLASIA
     Route: 048
  2. ADALAT [Concomitant]
  3. ALTACE [Concomitant]
  4. TENORMIN [Concomitant]
  5. LASIX [Concomitant]
  6. ASPIRIN [Concomitant]
  7. LIPITOR [Concomitant]
  8. ACTOS [Concomitant]
  9. COMBIVENT (IPATROPRIUM+ALBUTEROL) [Concomitant]
  10. FLOVENT [Concomitant]

REACTIONS (1)
  - PRIAPISM [None]
